FAERS Safety Report 23614973 (Version 2)
Quarter: 2025Q2

REPORT INFORMATION
  Report Type: Report from Study
  Country: DE (occurrence: DE)
  Receive Date: 20240311
  Receipt Date: 20250430
  Transmission Date: 20250717
  Serious: Yes (Hospitalization, Other)
  Sender: AUROBINDO
  Company Number: DE-OTSUKA-2024_004730

PATIENT
  Sex: Female

DRUGS (1)
  1. ARIPIPRAZOLE [Suspect]
     Active Substance: ARIPIPRAZOLE
     Indication: Adjustment disorder
     Route: 065

REACTIONS (3)
  - Suicidal ideation [Unknown]
  - Drug level above therapeutic [Unknown]
  - Off label use [Unknown]
